FAERS Safety Report 4497583-2 (Version None)
Quarter: 2004Q4

REPORT INFORMATION
  Report Type: 
  Country: None (occurrence: None)
  Receive Date: 20041108
  Receipt Date: 20041028
  Transmission Date: 20050328
  Serious: Yes (Other)
  Sender: FDA-Public Use
  Company Number: SE-JNJFOC-20041100046

PATIENT
  Age: 14 Year
  Sex: Female

DRUGS (1)
  1. TOPAMAX [Suspect]
     Indication: DRUG USE FOR UNKNOWN INDICATION
     Route: 049
     Dates: start: 20040501, end: 20040901

REACTIONS (3)
  - ENCEPHALOPATHY [None]
  - MENTAL IMPAIRMENT [None]
  - WEIGHT DECREASED [None]
